FAERS Safety Report 8081011-4 (Version None)
Quarter: 2012Q1

REPORT INFORMATION
  Report Type: 
  Country: None (occurrence: None)
  Receive Date: 20120130
  Receipt Date: 20120117
  Transmission Date: 20120608
  Serious: Yes (Hospitalization, Other)
  Sender: FDA-Public Use
  Company Number: PHHY2012BR004316

PATIENT
  Sex: Male

DRUGS (12)
  1. EXELON [Suspect]
     Dosage: UNK
     Dates: start: 20110501, end: 20110901
  2. EXELON [Suspect]
     Dosage: 1.5 MG, UNK
  3. OMEPRAZOLE [Concomitant]
     Indication: ABDOMINAL DISCOMFORT
     Dosage: 1 DF, UNK
     Route: 048
  4. ALLOPURINOL [Concomitant]
     Indication: GOUT
     Dosage: 100 MG, QD
     Route: 048
  5. COLCHICINE [Concomitant]
     Indication: OSTEOARTHRITIS
     Route: 048
  6. CALCORT [Concomitant]
     Indication: DYSARTHRIA
     Dosage: 1 DF, UNK
     Route: 048
  7. ATACAND [Concomitant]
     Indication: BLOOD PRESSURE ABNORMAL
     Dosage: 8 MG, QD
  8. FINASTERIDE [Concomitant]
     Indication: URINARY INCONTINENCE
     Dosage: 1 DF, UNK
     Route: 048
  9. OXYBUTYNIN [Concomitant]
     Indication: URINARY INCONTINENCE
     Dosage: 1 DF, UNK
     Route: 048
     Dates: start: 20100101
  10. EXELON [Suspect]
     Dosage: 4.6 MG, DAILY
     Route: 062
     Dates: start: 20110901
  11. EXELON [Suspect]
     Dosage: 4.6 MG, QOD
     Route: 062
     Dates: start: 20111101
  12. COLCHICINE [Concomitant]
     Indication: GOUT

REACTIONS (2)
  - CEREBRAL ISCHAEMIA [None]
  - DIARRHOEA [None]
